FAERS Safety Report 20715674 (Version 1)
Quarter: 2022Q2

REPORT INFORMATION
  Report Type: Spontaneous
  Country: US (occurrence: US)
  Receive Date: 20220415
  Receipt Date: 20220415
  Transmission Date: 20220721
  Serious: No
  Sender: FDA-Public Use
  Company Number: US-LANNETT COMPANY, INC.-US-2021LAN000274

PATIENT
  Age: 51 Year
  Sex: Female

DRUGS (5)
  1. HYDROCORTISONE [Suspect]
     Active Substance: HYDROCORTISONE
     Indication: Eczema
     Dosage: UNK
     Route: 065
     Dates: start: 2021
  2. ZINC CREAM [Concomitant]
     Indication: Adverse event following immunisation
     Dosage: UNK
     Route: 065
     Dates: start: 2021
  3. METHYLPREDNISOLONE [Concomitant]
     Active Substance: METHYLPREDNISOLONE
     Indication: Adverse event following immunisation
     Dosage: UNK
     Route: 065
     Dates: start: 2021
  4. PREDNISONE [Concomitant]
     Active Substance: PREDNISONE
     Indication: Adverse event following immunisation
     Dosage: UNK
     Route: 065
     Dates: start: 2021
  5. LORATADINE [Concomitant]
     Active Substance: LORATADINE
     Indication: Adverse event following immunisation
     Dosage: UNK
     Route: 048
     Dates: start: 2021

REACTIONS (1)
  - Fatigue [Recovering/Resolving]

NARRATIVE: CASE EVENT DATE: 20210101
